FAERS Safety Report 4881634-7 (Version None)
Quarter: 2006Q1

REPORT INFORMATION
  Report Type: 
  Country: None (occurrence: None)
  Receive Date: 20060116
  Receipt Date: 20051102
  Transmission Date: 20060701
  Serious: Yes (Life-Threatening, Hospitalization)
  Sender: FDA-Public Use
  Company Number: PHFR2005GB03616

PATIENT
  Age: 44 Year
  Sex: Female

DRUGS (9)
  1. CLOZAPINE [Suspect]
     Indication: SCHIZOPHRENIA
     Dosage: 700 MG/DAY
     Route: 048
     Dates: start: 20020218
  2. CLOZAPINE [Suspect]
  3. CLOZAPINE [Suspect]
     Dosage: 50 MG, BID
     Route: 048
  4. LITHIUM [Concomitant]
  5. PROCYCLIDINE HYDROCHLORIDE 2MG TAB [Concomitant]
     Indication: TREMOR
     Dosage: 10 MG/DAY
     Route: 048
     Dates: start: 20040501
  6. SULPIRIDE [Concomitant]
     Indication: PSYCHOTIC DISORDER
     Dosage: 800 MG/DAY
     Route: 048
     Dates: start: 20050401
  7. VALPROATE SODIUM [Concomitant]
     Indication: CONVULSION
     Dosage: 1 G/DAY
     Route: 048
     Dates: start: 20050901
  8. PRIADEL [Concomitant]
     Indication: AFFECTIVE DISORDER
     Dosage: 800 MG/DAY
     Route: 048
  9. IRON [Concomitant]
     Indication: IRON DEFICIENCY
     Route: 048

REACTIONS (24)
  - ABDOMINAL DISTENSION [None]
  - ABDOMINAL PAIN [None]
  - ABDOMINAL PAIN UPPER [None]
  - AGITATION [None]
  - BLOOD UREA INCREASED [None]
  - C-REACTIVE PROTEIN INCREASED [None]
  - CIRCULATORY COLLAPSE [None]
  - COLITIS [None]
  - COLONIC PSEUDO-OBSTRUCTION [None]
  - CONFUSIONAL STATE [None]
  - CONSTIPATION [None]
  - DYSARTHRIA [None]
  - HYPOTENSION [None]
  - ILEUS [None]
  - LUNG CONSOLIDATION [None]
  - MALAISE [None]
  - MELAENA [None]
  - NEUTROPHIL COUNT INCREASED [None]
  - PLEURAL EFFUSION [None]
  - PNEUMONIA [None]
  - RESPIRATORY FAILURE [None]
  - VOMITING [None]
  - WHITE BLOOD CELL COUNT INCREASED [None]
  - X-RAY GASTROINTESTINAL TRACT ABNORMAL [None]
